FAERS Safety Report 17306552 (Version 1)
Quarter: 2020Q1

REPORT INFORMATION
  Report Type: Spontaneous
  Country: US (occurrence: US)
  Receive Date: 20200106
  Receipt Date: 20200106
  Transmission Date: 20200409
  Serious: No
  Sender: FDA-Public Use
  Company Number: None

PATIENT
  Age: 37 Year
  Weight: 86.18 kg

DRUGS (1)
  1. QUETIAPINE (QUETIAPINE  FUMARATE  25MG TAB) [Suspect]
     Active Substance: QUETIAPINE
     Indication: BIPOLAR DISORDER
     Route: 048
     Dates: start: 20191206, end: 20191207

REACTIONS (3)
  - Hypotension [None]
  - Fall [None]
  - Dizziness [None]

NARRATIVE: CASE EVENT DATE: 20191208
